FAERS Safety Report 9257947 (Version 1)
Quarter: 2013Q1

REPORT INFORMATION
  Report Type: Spontaneous
  Country: US (occurrence: None)
  Receive Date: 20121212
  Receipt Date: 20121212
  Transmission Date: 20140127
  Serious: No
  Sender: FDA-Public Use
  Company Number: 1208USA010718

PATIENT
  Sex: Male
  Weight: 102 kg

DRUGS (5)
  1. VICTRELIS [Suspect]
     Indication: HEPATITIS C
     Dates: start: 20120722
  2. REBETOL [Suspect]
  3. PEGASYS [Concomitant]
  4. VITAMINS (UNSPECIFIED) (VITAMINS (UNSPECIFIED) [Concomitant]
  5. ACSORBIC ACID (ASCORBIC ACID) [Suspect]

REACTIONS (1)
  - Injection site hypertrophy [None]
